FAERS Safety Report 9516728 (Version 2)
Quarter: 2013Q3

REPORT INFORMATION
  Report Type: Report from Study
  Country: JP (occurrence: JP)
  Receive Date: 20130911
  Receipt Date: 20130911
  Transmission Date: 20140515
  Serious: Yes (Hospitalization, Other)
  Sender: FDA-Public Use
  Company Number: JP-TAKEDA-TCI2013A04952

PATIENT
  Age: 64 Year
  Sex: Male
  Weight: 70 kg

DRUGS (8)
  1. BLINDED ALOGLIPTIN [Suspect]
     Indication: TYPE 2 DIABETES MELLITUS
     Route: 048
     Dates: start: 20130124, end: 20130807
  2. BLINDED INSULIN [Suspect]
     Indication: TYPE 2 DIABETES MELLITUS
     Route: 048
     Dates: start: 20130124, end: 20130807
  3. BLINDED PLACEBO [Suspect]
     Indication: TYPE 2 DIABETES MELLITUS
     Route: 048
     Dates: start: 20130124, end: 20130807
  4. BLINDED [Suspect]
     Indication: TYPE 2 DIABETES MELLITUS
     Route: 048
     Dates: start: 20130418, end: 20130807
  5. BLINDED ALOGLIPTIN [Suspect]
     Indication: TYPE 2 DIABETES MELLITUS
     Route: 048
     Dates: start: 20130418, end: 20130807
  6. BLINDED INSULIN [Suspect]
     Indication: TYPE 2 DIABETES MELLITUS
     Route: 048
     Dates: start: 20130418, end: 20130807
  7. BLINDED PLACEBO [Suspect]
     Indication: TYPE 2 DIABETES MELLITUS
     Route: 048
     Dates: start: 20130418, end: 20130807
  8. LIOVEL COMBINATION TABLETS (ALOGLIPTIN BENZOATE, PIOGLITAZONE HYDROCHLORIDE) [Suspect]
     Dosage: UNK
     Dates: start: 20120808

REACTIONS (1)
  - Pancreatic carcinoma [Not Recovered/Not Resolved]
